FAERS Safety Report 8341025-3 (Version None)
Quarter: 2012Q1

REPORT INFORMATION
  Report Type: 
  Country: None (occurrence: None)
  Receive Date: 20120330
  Receipt Date: 20110907
  Transmission Date: 20120608
  Serious: Yes (Other)
  Sender: FDA-Public Use
  Company Number: PHEH2011US00681

PATIENT
  Age: 87 Year
  Sex: Female

DRUGS (8)
  1. RISPERIDONE [Concomitant]
  2. EXELON [Suspect]
     Dosage: 4.6 MG/24 HOURS, TRANSDERMAL
     Route: 062
  3. RIVASTIGMINE TARTRATE [Concomitant]
  4. WARFARIN SODIUM [Concomitant]
  5. TIMOLOL MALEATE [Concomitant]
  6. TOPROL-XL [Concomitant]
  7. OCUVITE LUTEIN (ASCORBIC ACID, CUPRIC OXIDE, TOCOPHERYL ACETATE, XANTO [Concomitant]
  8. LIPITOR [Concomitant]

REACTIONS (7)
  - PRURITUS [None]
  - PRODUCT ADHESION ISSUE [None]
  - RASH GENERALISED [None]
  - HYPERSENSITIVITY [None]
  - DRUG INEFFECTIVE [None]
  - APPLICATION SITE HYPERSENSITIVITY [None]
  - ATRIAL FIBRILLATION [None]
